FAERS Safety Report 9379413 (Version 2)
Quarter: 2013Q3

REPORT INFORMATION
  Report Type: Spontaneous
  Country: US (occurrence: US)
  Receive Date: 20130702
  Receipt Date: 20130828
  Transmission Date: 20140515
  Serious: Yes (Other)
  Sender: FDA-Public Use
  Company Number: US-PFIZER INC-2013191866

PATIENT
  Age: 45 Year
  Sex: Female

DRUGS (10)
  1. XELJANZ [Suspect]
     Indication: RHEUMATOID ARTHRITIS
     Dosage: 5 MG (1 TABLET) TWICE A DAY
     Route: 048
     Dates: start: 201302
  2. PROTONIX [Concomitant]
     Dosage: 20 MG
  3. XANAX [Concomitant]
     Dosage: 0.25 MG
  4. MS CONTIN [Concomitant]
     Dosage: 200 MG
  5. LIPITOR [Concomitant]
     Dosage: 10 MG
  6. NEURONTIN [Concomitant]
     Dosage: 100 MG
  7. SYNTHROID [Concomitant]
     Dosage: 200 UG
  8. FOLIC ACID [Concomitant]
     Dosage: UNK
  9. CORGARD [Concomitant]
     Dosage: 40 MG
  10. METHOTREXATE [Concomitant]
     Dosage: 25 MG/ML

REACTIONS (8)
  - Infected cyst [Unknown]
  - Vascular rupture [Unknown]
  - Vertigo [Unknown]
  - Ear infection [Unknown]
  - Breast cyst [Unknown]
  - Inflammation [Unknown]
  - Arthritis [Unknown]
  - Sinusitis [Unknown]
